FAERS Safety Report 4425372-3 (Version None)
Quarter: 2004Q3

REPORT INFORMATION
  Report Type: 
  Country: None (occurrence: None)
  Receive Date: 20040813
  Receipt Date: 20040803
  Transmission Date: 20050211
  Serious: Yes (Hospitalization)
  Sender: FDA-Public Use
  Company Number: JPKYO-S-20040027

PATIENT
  Age: 46 Year
  Sex: Female

DRUGS (8)
  1. VINORELBINE TARTRATE [Suspect]
     Dosage: 30MG CYCLIC
     Dates: start: 20040204, end: 20040204
  2. GEMZAR [Suspect]
     Dates: start: 20040211, end: 20040211
  3. MORPHINE SULFATE [Concomitant]
  4. PROCHLORPERAZINE [Concomitant]
  5. MEXILETINE HCL [Concomitant]
  6. REBAMIPIDE [Concomitant]
  7. MEDICON [Concomitant]
  8. LOXOPROFEN [Concomitant]

REACTIONS (4)
  - DYSPNOEA [None]
  - HYPOXIA [None]
  - PNEUMONIA [None]
  - PYREXIA [None]
